FAERS Safety Report 22827960 (Version 3)
Quarter: 2023Q4

REPORT INFORMATION
  Report Type: Report from Study
  Country: BR (occurrence: BR)
  Receive Date: 20230816
  Receipt Date: 20231218
  Transmission Date: 20240110
  Serious: Yes (Other)
  Sender: FDA-Public Use
  Company Number: BR-002147023-NVSC2023BR020636

PATIENT
  Sex: Male
  Weight: 90 kg

DRUGS (6)
  1. COSENTYX [Suspect]
     Active Substance: SECUKINUMAB
     Indication: Psoriatic arthropathy
     Dosage: UNK
     Route: 065
  2. COSENTYX [Suspect]
     Active Substance: SECUKINUMAB
     Indication: Psoriasis
     Dosage: 2 DOSAGE FORM, QMO (ONE YEAR AND A HALF AGO)
     Route: 058
  3. COSENTYX [Suspect]
     Active Substance: SECUKINUMAB
     Indication: Ankylosing spondylitis
  4. LOSARTAN [Concomitant]
     Active Substance: LOSARTAN
     Indication: Hypertension
     Dosage: 50 MG, BID (MORE THAN 10 YEARS AGO)
     Route: 048
  5. HYDROCHLOROTHIAZIDE [Concomitant]
     Active Substance: HYDROCHLOROTHIAZIDE
     Indication: Hypertension
     Dosage: UNK, QD
     Route: 048
  6. BUDESONIDE\FORMOTEROL FUMARATE [Concomitant]
     Active Substance: BUDESONIDE\FORMOTEROL FUMARATE
     Indication: Dyspnoea
     Dosage: 2 DOSAGE FORM, BID (BUT USED ONLY IN CASE OF SHORTNESS OF BREATH)

REACTIONS (19)
  - Pulmonary mass [Unknown]
  - Fatigue [Not Recovered/Not Resolved]
  - Illness [Unknown]
  - Psoriasis [Unknown]
  - Nail psoriasis [Recovering/Resolving]
  - Condition aggravated [Unknown]
  - Pyrexia [Unknown]
  - Influenza like illness [Recovered/Resolved with Sequelae]
  - Dyspnoea [Unknown]
  - Discomfort [Unknown]
  - Back pain [Unknown]
  - Arthralgia [Unknown]
  - Spinal pain [Unknown]
  - Emphysema [Unknown]
  - Lung cyst [Unknown]
  - Bronchial wall thickening [Unknown]
  - Lung disorder [Unknown]
  - Malaise [Unknown]
  - Therapeutic product effect incomplete [Unknown]

NARRATIVE: CASE EVENT DATE: 20220101
